FAERS Safety Report 23446493 (Version 1)
Quarter: 2024Q1

REPORT INFORMATION
  Report Type: Spontaneous
  Country: US (occurrence: None)
  Receive Date: 20240125
  Receipt Date: 20240125
  Transmission Date: 20240409
  Serious: No
  Sender: FDA-Public Use
  Company Number: None

PATIENT
  Age: 75 Year
  Sex: Female
  Weight: 87.3 kg

DRUGS (13)
  1. LEQVIO [Suspect]
     Active Substance: INCLISIRAN SODIUM
     Indication: Infusion
     Dates: start: 20231007, end: 20231207
  2. LEVOTHYROXINE [Concomitant]
     Active Substance: LEVOTHYROXINE\LEVOTHYROXINE SODIUM
  3. lorsatan [Concomitant]
  4. TIZANIDINE HYDROCHLORIDE [Concomitant]
     Active Substance: TIZANIDINE HYDROCHLORIDE
  5. triamcinolone acetone [Concomitant]
  6. WIXELA INHUB [Concomitant]
     Active Substance: FLUTICASONE PROPIONATE\SALMETEROL XINAFOATE
  7. knee replacement [Concomitant]
  8. cataracts [Concomitant]
  9. multi vrm [Concomitant]
  10. POTASSIUM [Concomitant]
     Active Substance: POTASSIUM
  11. zytrex [Concomitant]
  12. FISH OIL [Concomitant]
     Active Substance: FISH OIL
  13. TYLENOL [Concomitant]
     Active Substance: ACETAMINOPHEN

REACTIONS (7)
  - Injection site rash [None]
  - Urticaria [None]
  - Muscle spasms [None]
  - Muscle spasms [None]
  - Sleep disorder [None]
  - Muscle spasms [None]
  - Muscle spasms [None]

NARRATIVE: CASE EVENT DATE: 20231221
